FAERS Safety Report 9431262 (Version 3)
Quarter: 2013Q3

REPORT INFORMATION
  Report Type: Spontaneous
  Country: US (occurrence: US)
  Receive Date: 20130730
  Receipt Date: 20130917
  Transmission Date: 20140515
  Serious: No
  Sender: FDA-Public Use
  Company Number: US-009507513-1307USA006349

PATIENT
  Sex: Female

DRUGS (3)
  1. AZASITE [Suspect]
     Indication: HORDEOLUM
     Dosage: 1 DROP IN RIGHT EYE, BID
     Route: 047
     Dates: start: 20130702
  2. AZASITE [Suspect]
     Indication: EYE INFECTION
  3. OCUSOFT EYE WASH [Concomitant]

REACTIONS (4)
  - Abnormal sensation in eye [Recovered/Resolved]
  - Vision blurred [Recovered/Resolved]
  - Drug prescribing error [Unknown]
  - Drug dose omission [Unknown]
